FAERS Safety Report 10522836 (Version 2)
Quarter: 2014Q4

REPORT INFORMATION
  Report Type: Spontaneous
  Country: US (occurrence: None)
  Receive Date: 20141010
  Receipt Date: 20141204
  Transmission Date: 20150528
  Serious: Yes (Hospitalization, Other)
  Sender: FDA-Public Use
  Company Number: 2014VID00052

PATIENT
  Age: 49 Year
  Sex: Female

DRUGS (4)
  1. UNSPECIFIED ANTI-SEIZURE MEDICATIONS [Concomitant]
  2. UNSPECIFIED HIGH BLOOD PRESSURE MEDICATION [Concomitant]
     Active Substance: UNSPECIFIED INGREDIENT
  3. CLINDAMYCIN [Concomitant]
     Active Substance: CLINDAMYCIN\CLINDAMYCIN PHOSPHATE
  4. ACTIMMUNE [Suspect]
     Active Substance: INTERFERON GAMMA-1B
     Indication: CHRONIC GRANULOMATOUS DISEASE
     Dosage: THREE TIMES IN A WEEK.
     Route: 058
     Dates: start: 2004, end: 201409

REACTIONS (14)
  - Nerve injury [None]
  - Contusion [None]
  - Impaired healing [None]
  - Seizure [None]
  - Blood pressure increased [None]
  - Papule [None]
  - Pyrexia [None]
  - Burns third degree [None]
  - Cellulitis [None]
  - Fall [None]
  - Drug interaction [None]
  - Myalgia [None]
  - Burns second degree [None]
  - Accident [None]

NARRATIVE: CASE EVENT DATE: 2014
